FAERS Safety Report 12538672 (Version 1)
Quarter: 2016Q3

REPORT INFORMATION
  Report Type: Spontaneous
  Country: FR (occurrence: FR)
  Receive Date: 20160708
  Receipt Date: 20160708
  Transmission Date: 20161109
  Serious: Yes (Other)
  Sender: FDA-Public Use
  Company Number: FR-CIPLA LTD.-2016FR08623

PATIENT

DRUGS (2)
  1. VINFLUNINE [Suspect]
     Active Substance: VINFLUNINE
     Indication: NON-SMALL CELL LUNG CANCER
     Dosage: 280 MG/M2, ON DAY 1 EVERY 3 WEEKS
     Route: 042
  2. CARBOPLATIN. [Suspect]
     Active Substance: CARBOPLATIN
     Indication: NON-SMALL CELL LUNG CANCER
     Dosage: AUC=5, ON DAY 1 EVERY 3 WEEKS
     Route: 065

REACTIONS (1)
  - Musculoskeletal disorder [Unknown]
